FAERS Safety Report 14194235 (Version 1)
Quarter: 2017Q4

REPORT INFORMATION
  Report Type: Spontaneous
  Country: US (occurrence: US)
  Receive Date: 20171116
  Receipt Date: 20171116
  Transmission Date: 20180321
  Serious: No
  Sender: FDA-Public Use
  Company Number: US-PFIZER INC-2017489735

PATIENT
  Age: 41 Year
  Sex: Female
  Weight: 82 kg

DRUGS (7)
  1. LYRICA [Suspect]
     Active Substance: PREGABALIN
     Indication: CONNECTIVE TISSUE DISORDER
  2. PREDNISONE. [Suspect]
     Active Substance: PREDNISONE
     Dosage: 2 MG, DAILY
  3. LYRICA [Suspect]
     Active Substance: PREGABALIN
     Indication: AUTOIMMUNE DISORDER
  4. LYRICA [Suspect]
     Active Substance: PREGABALIN
     Indication: FIBROMYALGIA
     Dosage: 150 MG, 3X/DAY
     Route: 048
     Dates: start: 201612
  5. PREDNISONE. [Suspect]
     Active Substance: PREDNISONE
     Dosage: 50 MG, DAILY
  6. PREDNISONE. [Suspect]
     Active Substance: PREDNISONE
     Dosage: 60 MG, DAILY
  7. DULOXETINE. [Suspect]
     Active Substance: DULOXETINE
     Dosage: 60 MG, 1X/DAY BEFORE BED
     Dates: start: 201611

REACTIONS (1)
  - Weight increased [Unknown]
